FAERS Safety Report 18665241 (Version 1)
Quarter: 2020Q4

REPORT INFORMATION
  Report Type: Spontaneous
  Country: US (occurrence: US)
  Receive Date: 20201225
  Receipt Date: 20201225
  Transmission Date: 20210114
  Serious: No
  Sender: FDA-Public Use
  Company Number: US-LUPIN PHARMACEUTICALS INC.-2020-09262

PATIENT
  Age: 15 Year
  Sex: Female

DRUGS (1)
  1. TRIMETHOBENZAMIDE [Suspect]
     Active Substance: TRIMETHOBENZAMIDE
     Indication: NAUSEA
     Dosage: 200 MILLIGRAM, UNK
     Route: 030

REACTIONS (1)
  - Therapy non-responder [Unknown]
